FAERS Safety Report 4313396-6 (Version None)
Quarter: 2004Q1

REPORT INFORMATION
  Report Type: 
  Country: None (occurrence: None)
  Receive Date: 20040304
  Receipt Date: 20040212
  Transmission Date: 20041129
  Serious: Yes (Other)
  Sender: FDA-Public Use
  Company Number: USA040259229

PATIENT
  Sex: Female

DRUGS (1)
  1. EVISTA [Suspect]
     Dates: start: 20040127

REACTIONS (3)
  - BLOOD PRESSURE INCREASED [None]
  - EMBOLISM [None]
  - LOSS OF CONSCIOUSNESS [None]
